FAERS Safety Report 9516841 (Version 1)
Quarter: 2013Q1

REPORT INFORMATION
  Report Type: Spontaneous
  Country: US (occurrence: None)
  Receive Date: 20130305
  Receipt Date: 20130305
  Transmission Date: 20140127
  Serious: Yes (Hospitalization)
  Sender: FDA-Public Use
  Company Number: 163-21880-12081186

PATIENT
  Age: 64 Year
  Sex: Male

DRUGS (9)
  1. REVLIMID (LENALIDOMIDE) (CAPSULES) [Suspect]
     Indication: PLASMA CELL MYELOMA
     Dosage: 21 IN 21 D; INTERRRUPTED
     Route: 048
     Dates: start: 201207
  2. PROZAC (FLUOXETINE HYDROCHLORIDE) [Concomitant]
  3. BUSPIRONE (BUSPIRONE) [Concomitant]
  4. TOPIRAMATE (TOPIRAMATE) [Concomitant]
  5. ATENOLOL (ATENOLOL) [Concomitant]
  6. CRESTOR (ROSUVASTATIN) [Concomitant]
  7. WARFARIN (WARFARIN) [Concomitant]
  8. AMBIEN (ZOLPIDEM TARTRATE) [Concomitant]
  9. FLOMAX (TAMSULOSIN HYDROCHLORIDE) [Concomitant]

REACTIONS (1)
  - Infection [None]
